FAERS Safety Report 22154857 (Version 3)
Quarter: 2023Q2

REPORT INFORMATION
  Report Type: Spontaneous
  Country: US (occurrence: US)
  Receive Date: 20230330
  Receipt Date: 20230619
  Transmission Date: 20230722
  Serious: Yes (Death, Hospitalization, Other)
  Sender: FDA-Public Use
  Company Number: US-ALXN-A202303692

PATIENT
  Sex: Male

DRUGS (1)
  1. SOLIRIS [Suspect]
     Active Substance: ECULIZUMAB
     Indication: Atypical haemolytic uraemic syndrome
     Dosage: UNK
     Route: 065

REACTIONS (10)
  - Cardiac arrest [Fatal]
  - Thrombotic microangiopathy [Unknown]
  - Cardiac failure congestive [Unknown]
  - Systemic lupus erythematosus [Unknown]
  - Ascites [Unknown]
  - Poor venous access [Unknown]
  - Peripheral swelling [Unknown]
  - Generalised oedema [Unknown]
  - Asthenia [Unknown]
  - Fatigue [Unknown]
